APPROVED DRUG PRODUCT: METOPROLOL SUCCINATE
Active Ingredient: METOPROLOL SUCCINATE
Strength: EQ 100MG TARTRATE
Dosage Form/Route: TABLET, EXTENDED RELEASE;ORAL
Application: A078889 | Product #001 | TE Code: AB
Applicant: DOCTOR REDDYS LABORATORIES LTD
Approved: Aug 15, 2012 | RLD: No | RS: No | Type: RX